FAERS Safety Report 8722094 (Version 2)
Quarter: 2012Q4

REPORT INFORMATION
  Report Type: Report from Study
  Country: CA (occurrence: CA)
  Receive Date: 20120814
  Receipt Date: 20121030
  Transmission Date: 20130627
  Serious: Yes (Hospitalization, Other)
  Sender: FDA-Public Use
  Company Number: CA-UCBSA-063343

PATIENT
  Age: 47 Year
  Sex: Female

DRUGS (11)
  1. CIMZIA [Suspect]
     Indication: RHEUMATOID ARTHRITIS
     Dosage: NO OF DOSES RECIEVED: 9
     Route: 058
     Dates: start: 20110819, end: 201205
  2. LEVOLEUCOVORIN CALCIUM [Concomitant]
     Dosage: STRENGTH: 5MG
     Route: 048
  3. TYLENOL NO 3 [Concomitant]
     Dosage: 1 TAB;  BID, PRN (AS NEEDED) FOR 100D
  4. HYDROMORPHONE HCL [Concomitant]
     Dosage: 2MG TABLET, 1 TAB QD, PRN (AS NEEDED)
     Route: 048
  5. CELEXA [Concomitant]
     Dosage: STRENGTH: 20MG ; 2 TAB QD FOR 100d
  6. MIRAPEX [Concomitant]
     Dosage: 2 TAB QHS ( EVERY NIGHT) FOR 100D
  7. METHOTREXATE [Concomitant]
     Dates: start: 20080430
  8. METHOTREXATE [Concomitant]
     Dosage: STRENGTH: 2.5MG TABLET; 8 TAB QW FOR 13 WEEKS
  9. LYRICA [Concomitant]
     Dosage: STRENGTH: 75MG; 2 TAB TID FOR 100D
  10. DEXILANT [Concomitant]
     Dosage: 60MG CAP; 1 TAB QD FOR 100, AS NECESSARY
  11. MELOXICAM [Concomitant]
     Dosage: STRENGTH: 15MG TAB ; 1TAB QD, PRN( AS NECESSARY)
     Route: 048

REACTIONS (2)
  - Nephrolithiasis [Recovered/Resolved]
  - Sepsis [Recovered/Resolved]
